FAERS Safety Report 15277942 (Version 1)
Quarter: 2018Q3

REPORT INFORMATION
  Report Type: Report from Study
  Country: US (occurrence: US)
  Receive Date: 20180814
  Receipt Date: 20180814
  Transmission Date: 20181010
  Serious: No
  Sender: FDA-Public Use
  Company Number: PHEH2018US033101

PATIENT
  Age: 9 Year

DRUGS (1)
  1. ILARIS [Suspect]
     Active Substance: CANAKINUMAB
     Indication: CRYOPYRIN ASSOCIATED PERIODIC SYNDROME
     Dosage: 100 MG, EVERY 3 WEEKS
     Route: 058

REACTIONS (2)
  - Mass [Unknown]
  - Rash [Unknown]

NARRATIVE: CASE EVENT DATE: 20180712
